FAERS Safety Report 5466245-7 (Version None)
Quarter: 2007Q3

REPORT INFORMATION
  Report Type: 
  Country: None (occurrence: None)
  Receive Date: 20070919
  Receipt Date: 20070910
  Transmission Date: 20080115
  Serious: Yes (Hospitalization)
  Sender: FDA-Public Use
  Company Number: 2007AL003762

PATIENT
  Age: 32 Year
  Sex: Male

DRUGS (2)
  1. FLUVOXAMINE MALEATE [Suspect]
     Indication: DEPRESSION
     Dosage: 200 MG
     Dates: start: 20050801
  2. CLINDAMYCIN HCL [Concomitant]

REACTIONS (5)
  - CLUSTER HEADACHE [None]
  - DEPRESSED MOOD [None]
  - DRUG LEVEL BELOW THERAPEUTIC [None]
  - DYSKINESIA [None]
  - FURUNCLE [None]
